FAERS Safety Report 15130487 (Version 4)
Quarter: 2019Q4

REPORT INFORMATION
  Report Type: Report from Study
  Country: FR (occurrence: FR)
  Receive Date: 20180711
  Receipt Date: 20191211
  Transmission Date: 20200122
  Serious: Yes (Death, Hospitalization, Other)
  Sender: FDA-Public Use
  Company Number: FR-JAZZ-2018-FR-010607

PATIENT

DRUGS (8)
  1. URSODEOXYCHOLIC ACID [Suspect]
     Active Substance: URSODIOL
     Indication: PROPHYLAXIS
  2. CALCIPARINE [Concomitant]
     Active Substance: HEPARIN CALCIUM
     Indication: PRODUCT USED FOR UNKNOWN INDICATION
  3. BACTRIM [Suspect]
     Active Substance: SULFAMETHOXAZOLE\TRIMETHOPRIM
     Indication: PROPHYLAXIS
  4. DEFITELIO [Suspect]
     Active Substance: DEFIBROTIDE SODIUM
     Indication: PROPHYLAXIS
     Dosage: 25 MG/KG, QD
     Route: 042
     Dates: start: 20141218, end: 20150108
  5. VORICONAZOLE. [Suspect]
     Active Substance: VORICONAZOLE
     Indication: PROPHYLAXIS
  6. ZELITREX [Suspect]
     Active Substance: VALACYCLOVIR HYDROCHLORIDE
     Indication: PROPHYLAXIS
  7. RIVOTRIL [Suspect]
     Active Substance: CLONAZEPAM
     Indication: PROPHYLAXIS
  8. CASPOFUNGIN [Suspect]
     Active Substance: CASPOFUNGIN
     Indication: PROPHYLAXIS

REACTIONS (26)
  - Somnolence [Fatal]
  - Circulatory collapse [Unknown]
  - Klebsiella infection [Unknown]
  - Neuropathy peripheral [Unknown]
  - Starvation [Unknown]
  - Cholestasis [Unknown]
  - Retinal artery occlusion [Unknown]
  - Thrombocytopenia [Unknown]
  - Diarrhoea [Unknown]
  - Confusional state [Fatal]
  - Renal failure [Fatal]
  - Staphylococcal infection [Unknown]
  - Graft versus host disease [Unknown]
  - Stenotrophomonas infection [Unknown]
  - Clostridium difficile infection [Unknown]
  - Major depression [Unknown]
  - Amyotrophy [Unknown]
  - Asthenia [Unknown]
  - Product use in unapproved indication [Unknown]
  - Pancreatitis acute [Fatal]
  - Hypotension [Unknown]
  - Candida infection [Unknown]
  - Inflammation [Unknown]
  - Tachycardia [Unknown]
  - Hyperlactacidaemia [Unknown]
  - Hepatocellular injury [Unknown]

NARRATIVE: CASE EVENT DATE: 20141218
